FAERS Safety Report 22394576 (Version 1)
Quarter: 2023Q2

REPORT INFORMATION
  Report Type: Report from Study
  Country: JP (occurrence: JP)
  Receive Date: 20230601
  Receipt Date: 20230601
  Transmission Date: 20230721
  Serious: Yes (Death)
  Sender: FDA-Public Use
  Company Number: JP-SERVIER-S23003950

PATIENT
  Age: 69 Year
  Sex: Male
  Weight: 56.7 kg

DRUGS (18)
  1. ONIVYDE [Suspect]
     Active Substance: IRINOTECAN HYDROCHLORIDE
     Indication: Pancreatic carcinoma
     Dosage: 67.6 MG/M2
     Route: 065
     Dates: start: 20220523, end: 20220523
  2. ONIVYDE [Suspect]
     Active Substance: IRINOTECAN HYDROCHLORIDE
     Dosage: 67 MG/M2
     Route: 065
     Dates: start: 20220606, end: 20220606
  3. ONIVYDE [Suspect]
     Active Substance: IRINOTECAN HYDROCHLORIDE
     Dosage: 67 MG/M2
     Route: 065
     Dates: start: 20220620, end: 20220620
  4. ONIVYDE [Suspect]
     Active Substance: IRINOTECAN HYDROCHLORIDE
     Dosage: 67 MG/M2
     Route: 065
     Dates: start: 20220704, end: 20220704
  5. LEVOLEUCOVORIN CALCIUM [Concomitant]
     Active Substance: LEVOLEUCOVORIN CALCIUM
     Indication: Pancreatic carcinoma
     Dosage: 200 MG/M2
     Route: 065
     Dates: start: 20220523, end: 20220523
  6. LEVOLEUCOVORIN CALCIUM [Concomitant]
     Active Substance: LEVOLEUCOVORIN CALCIUM
     Dosage: 200 MG/M2
     Route: 065
     Dates: start: 20220606, end: 20220606
  7. LEVOLEUCOVORIN CALCIUM [Concomitant]
     Active Substance: LEVOLEUCOVORIN CALCIUM
     Dosage: 200 MG/M2
     Route: 065
     Dates: start: 20220620, end: 20220620
  8. LEVOLEUCOVORIN CALCIUM [Concomitant]
     Active Substance: LEVOLEUCOVORIN CALCIUM
     Dosage: 200 MG/M2
     Route: 065
     Dates: start: 20220704, end: 20220704
  9. FLUOROURACIL [Concomitant]
     Active Substance: FLUOROURACIL
     Indication: Pancreatic carcinoma
     Dosage: 2397 MG/M2
     Route: 065
     Dates: start: 20220523, end: 20220525
  10. FLUOROURACIL [Concomitant]
     Active Substance: FLUOROURACIL
     Dosage: 2397 MG/M2
     Route: 065
     Dates: start: 20220606, end: 20220608
  11. FLUOROURACIL [Concomitant]
     Active Substance: FLUOROURACIL
     Dosage: 2397 MG/M2
     Route: 065
     Dates: start: 20220620, end: 20220622
  12. FLUOROURACIL [Concomitant]
     Active Substance: FLUOROURACIL
     Dosage: 2397 MG/M2
     Route: 065
     Dates: start: 20220704, end: 20220706
  13. PALONOSETRON HYDROCHLORIDE [Concomitant]
     Active Substance: PALONOSETRON HYDROCHLORIDE
     Indication: Chemotherapy side effect prophylaxis
     Dosage: UNKNOWN
     Route: 065
  14. DEXAMETHASONE SODIUM PHOSPHATE [Concomitant]
     Active Substance: DEXAMETHASONE SODIUM PHOSPHATE
     Indication: Chemotherapy side effect prophylaxis
     Dosage: UNKNOWN
     Route: 065
  15. APREPITANT [Concomitant]
     Active Substance: APREPITANT
     Indication: Chemotherapy side effect prophylaxis
     Dosage: UNKNOWN
     Route: 048
  16. DEXAMETHASONE [Concomitant]
     Active Substance: DEXAMETHASONE
     Indication: Prophylaxis
     Dosage: 4 MG
     Route: 048
     Dates: start: 20220608, end: 20220609
  17. DEXAMETHASONE [Concomitant]
     Active Substance: DEXAMETHASONE
     Dosage: 4 MG
     Route: 048
     Dates: start: 20220622, end: 20220623
  18. DEXAMETHASONE [Concomitant]
     Active Substance: DEXAMETHASONE
     Dosage: 4 MG
     Route: 048
     Dates: start: 20220706, end: 20220707

REACTIONS (3)
  - Malignant neoplasm progression [Fatal]
  - Pleural effusion [Fatal]
  - Off label use [Unknown]

NARRATIVE: CASE EVENT DATE: 20220523
